FAERS Safety Report 17588182 (Version 1)
Quarter: 2020Q1

REPORT INFORMATION
  Report Type: Report from Study
  Country: None (occurrence: PR)
  Receive Date: 20200327
  Receipt Date: 20200327
  Transmission Date: 20200409
  Serious: Yes (Hospitalization, Other)
  Sender: FDA-Public Use
  Company Number: PR-ABBVIE-20K-131-3336476-00

PATIENT
  Sex: Female
  Weight: 81.72 kg

DRUGS (1)
  1. HUMIRA [Suspect]
     Active Substance: ADALIMUMAB
     Indication: PSORIATIC ARTHROPATHY
     Route: 058
     Dates: start: 20190513

REACTIONS (4)
  - Amnesia [Unknown]
  - Syncope [Recovering/Resolving]
  - Hypertension [Unknown]
  - Secretion discharge [Unknown]

NARRATIVE: CASE EVENT DATE: 202003
